FAERS Safety Report 9263954 (Version 1)
Quarter: 2013Q2

REPORT INFORMATION
  Report Type: Other
  Country: IN (occurrence: IN)
  Receive Date: 20130430
  Receipt Date: 20130430
  Transmission Date: 20140414
  Serious: Yes (Death)
  Sender: FDA-Public Use
  Company Number: IN-BRISTOL-MYERS SQUIBB COMPANY-18832121

PATIENT
  Sex: Male

DRUGS (1)
  1. METFORMIN HCL [Suspect]
     Route: 064

REACTIONS (4)
  - Umbilical malformation [Fatal]
  - Urachal abnormality [Fatal]
  - Congenital genitourinary abnormality [Fatal]
  - Foetal exposure during pregnancy [Unknown]
